FAERS Safety Report 9636786 (Version 2)
Quarter: 2016Q2

REPORT INFORMATION
  Report Type: Report from Study
  Country: US (occurrence: US)
  Receive Date: 20131022
  Receipt Date: 20160518
  Transmission Date: 20160815
  Serious: Yes (Death)
  Sender: FDA-Public Use
  Company Number: US-ROCHE-1292291

PATIENT
  Sex: Male
  Weight: 75 kg

DRUGS (11)
  1. XOLAIR [Suspect]
     Active Substance: OMALIZUMAB
     Indication: ASTHMA
     Route: 058
  2. ADVAIR HFA [Concomitant]
     Active Substance: FLUTICASONE PROPIONATE\SALMETEROL XINAFOATE
     Dosage: 500-50
     Route: 065
  3. ALBUTEROL. [Concomitant]
     Active Substance: ALBUTEROL
  4. LEVAQUIN [Concomitant]
     Active Substance: LEVOFLOXACIN
  5. RESTORIL [Concomitant]
     Active Substance: TEMAZEPAM
  6. UNIPHYL [Concomitant]
     Active Substance: THEOPHYLLINE ANHYDROUS
     Route: 065
  7. SPIRIVA [Concomitant]
     Active Substance: TIOTROPIUM BROMIDE MONOHYDRATE
  8. MUCINEX [Concomitant]
     Active Substance: GUAIFENESIN
  9. COZARTAN [Concomitant]
     Route: 065
  10. WELLBUTRIN [Concomitant]
     Active Substance: BUPROPION HYDROCHLORIDE
  11. ASMANEX [Concomitant]
     Active Substance: MOMETASONE FUROATE

REACTIONS (1)
  - Death [Fatal]
